FAERS Safety Report 8692356 (Version 5)
Quarter: 2012Q4

REPORT INFORMATION
  Report Type: 
  Country: US (occurrence: US)
  Receive Date: 20120730
  Receipt Date: 20121009
  Transmission Date: 20130627
  Serious: Yes (Other)
  Sender: FDA-Public Use
  Company Number: US-PFIZER INC-2012180094

PATIENT
  Age: 50 Year
  Sex: Male

DRUGS (2)
  1. LYRICA [Suspect]
     Indication: NEURALGIA
     Dosage: 300 mg/day
  2. LYRICA [Suspect]
     Dosage: 100 mg, 4x/day

REACTIONS (3)
  - Road traffic accident [Unknown]
  - Cognitive disorder [Unknown]
  - Arthropathy [Unknown]
